FAERS Safety Report 5203572-2 (Version None)
Quarter: 2007Q1

REPORT INFORMATION
  Report Type: 
  Country: None (occurrence: None)
  Receive Date: 20070110
  Receipt Date: 20070104
  Transmission Date: 20070707
  Serious: Yes (Other)
  Sender: FDA-Public Use
  Company Number: FI-GLAXOSMITHKLINE-B0453233A

PATIENT
  Age: 55 Year
  Sex: Female

DRUGS (2)
  1. AVANDIA [Suspect]
     Dates: start: 20050101
  2. GREEN TEA [Concomitant]

REACTIONS (5)
  - DIZZINESS [None]
  - DYSPHAGIA [None]
  - DYSPNOEA [None]
  - SWELLING [None]
  - WEIGHT INCREASED [None]
